FAERS Safety Report 10964391 (Version 5)
Quarter: 2015Q3

REPORT INFORMATION
  Report Type: Report from Study
  Country: IT (occurrence: IT)
  Receive Date: 20150329
  Receipt Date: 20150825
  Transmission Date: 20151125
  Serious: Yes (Life-Threatening, Hospitalization, Other)
  Sender: FDA-Public Use
  Company Number: IT-BRISTOL-MYERS SQUIBB COMPANY-17094426

PATIENT
  Age: 66 Year
  Sex: Male

DRUGS (4)
  1. FLUORO URACIL [Concomitant]
     Active Substance: FLUOROURACIL
     Indication: RECTOSIGMOID CANCER STAGE IV
     Dosage: 600MG:29AUG12-05OCT12  400MG:29AUG12-05OCT12
     Route: 042
     Dates: start: 20120829, end: 20121005
  2. CETUXIMAB [Suspect]
     Active Substance: CETUXIMAB
     Indication: RECTOSIGMOID CANCER STAGE IV
     Dosage: MOST RECENT DOSE-05OCT12
     Route: 042
     Dates: start: 20120829, end: 20121005
  3. IRINOTECAN HCL [Concomitant]
     Active Substance: IRINOTECAN HYDROCHLORIDE
     Indication: RECTOSIGMOID CANCER STAGE IV
     Dosage: 180 MG/M2, UNK
     Route: 042
     Dates: start: 20120829, end: 20121005
  4. FOLINIC ACID [Concomitant]
     Active Substance: LEUCOVORIN
     Indication: PRODUCT USED FOR UNKNOWN INDICATION
     Dosage: 100 MG, UNK
     Route: 042
     Dates: start: 20120829, end: 20121005

REACTIONS (4)
  - Neutropenia [Recovered/Resolved]
  - Thrombocytopenia [Recovered/Resolved]
  - Diarrhoea [Unknown]
  - Abdominal pain [Unknown]

NARRATIVE: CASE EVENT DATE: 20121005
